FAERS Safety Report 5395371-6 (Version None)
Quarter: 2007Q3

REPORT INFORMATION
  Report Type: 
  Country: None (occurrence: None)
  Receive Date: 20070724
  Receipt Date: 20070718
  Transmission Date: 20080115
  Serious: Yes (Hospitalization)
  Sender: FDA-Public Use
  Company Number: JP-MERCK-0707USA03390

PATIENT
  Age: 86 Year
  Sex: Female

DRUGS (11)
  1. PEPCID RPD [Suspect]
     Route: 048
  2. ALLOPURINOL [Suspect]
     Route: 048
  3. LASIX [Suspect]
     Route: 065
  4. NORVASC [Concomitant]
     Route: 065
  5. ASPIRIN [Concomitant]
     Route: 065
  6. FASTIC [Concomitant]
     Route: 065
  7. MONTELUKAST SODIUM [Concomitant]
     Route: 065
  8. UNIPHYL [Concomitant]
     Route: 065
  9. ALDACTONE [Concomitant]
     Route: 065
  10. MARZULENE [Concomitant]
     Route: 065
  11. LIPITOR [Concomitant]
     Route: 048

REACTIONS (2)
  - APLASTIC ANAEMIA [None]
  - PANCYTOPENIA [None]
